FAERS Safety Report 8110391 (Version 2)
Quarter: 2014Q2

REPORT INFORMATION
  Report Type: Spontaneous
  Country: US (occurrence: US)
  Receive Date: 20110829
  Receipt Date: 20140414
  Transmission Date: 20141212
  Serious: Yes (Life-Threatening, Hospitalization)
  Sender: FDA-Public Use
  Company Number: US-BAYER-2011-077920

PATIENT
  Age: 16 Year
  Sex: Female

DRUGS (5)
  1. YAZ [Suspect]
  2. YASMIN [Suspect]
  3. OCELLA [Suspect]
  4. RANITIDINE [Concomitant]
     Dosage: WICE DAILY
  5. NEXIUM [Concomitant]
     Dosage: 40 MG, DAILY
     Dates: start: 20081129

REACTIONS (10)
  - Cholecystitis [None]
  - Cholecystitis chronic [None]
  - Gallbladder disorder [None]
  - Gallbladder non-functioning [None]
  - Internal injury [None]
  - Internal injury [None]
  - Anxiety [None]
  - Anhedonia [None]
  - Injury [None]
  - Pain [None]
